FAERS Safety Report 8036660-6 (Version None)
Quarter: 2012Q1

REPORT INFORMATION
  Report Type: 
  Country: None (occurrence: None)
  Receive Date: 20120111
  Receipt Date: 20120105
  Transmission Date: 20120608
  Serious: Yes (Hospitalization, Congenital Anomaly, Other)
  Sender: FDA-Public Use
  Company Number: FR-PFIZER INC-2012002877

PATIENT
  Sex: Male

DRUGS (8)
  1. ATARAX [Suspect]
     Dosage: 2 DF, 1X/DAY
     Route: 064
  2. DEPAKOTE [Concomitant]
     Dosage: UNK
  3. LEPTICUR [Suspect]
     Dosage: UNK
     Route: 064
  4. RISPERDAL [Suspect]
     Dosage: 4 MG, 1X/DAY
     Route: 064
  5. TRIHEXYPHENIDYL HYDROCHLORIDE [Concomitant]
     Dosage: UNK
  6. ANAFRANIL [Concomitant]
     Dosage: UNK
  7. NEURONTIN [Suspect]
     Dosage: 100 MG, 2X/DAY
     Route: 064
  8. SULFARLEM [Suspect]
     Dosage: UNK
     Route: 064

REACTIONS (9)
  - STRIDOR [None]
  - MATERNAL EXPOSURE TIMING UNSPECIFIED [None]
  - HIGH ARCHED PALATE [None]
  - WEIGHT GAIN POOR [None]
  - GLOSSOPTOSIS [None]
  - FEEDING DISORDER NEONATAL [None]
  - RETROGNATHIA [None]
  - PIERRE ROBIN SYNDROME [None]
  - HIP DYSPLASIA [None]
